FAERS Safety Report 9322356 (Version 1)
Quarter: 2013Q2

REPORT INFORMATION
  Report Type: Spontaneous
  Country: ZA (occurrence: None)
  Receive Date: 20130529
  Receipt Date: 20130529
  Transmission Date: 20140414
  Serious: Yes (Other)
  Sender: FDA-Public Use
  Company Number: 2013P1006176

PATIENT
  Sex: 0

DRUGS (1)
  1. KANAMYCIN SULFATE [Suspect]
     Indication: TUBERCULOSIS

REACTIONS (1)
  - Abscess [None]
